FAERS Safety Report 5978130-2 (Version None)
Quarter: 2008Q4

REPORT INFORMATION
  Report Type: 
  Country: None (occurrence: None)
  Receive Date: 20081204
  Receipt Date: 20081125
  Transmission Date: 20090506
  Serious: Yes (Hospitalization, Other)
  Sender: FDA-Public Use
  Company Number: US-BAYER-200836384NA

PATIENT
  Age: 58 Year
  Sex: Female
  Weight: 68 kg

DRUGS (17)
  1. BETASERON [Suspect]
     Indication: SECONDARY PROGRESSIVE MULTIPLE SCLEROSIS
  2. PREDNISONE TAB [Concomitant]
  3. AVONEX [Concomitant]
  4. FOSAMAX [Concomitant]
  5. FELODIPINE [Concomitant]
  6. ACIPHEX [Concomitant]
  7. ESTRADIOL [Concomitant]
  8. LISINOPRIL [Concomitant]
  9. BACLOFEN [Concomitant]
     Dosage: TOTAL DAILY DOSE: 30 MG
  10. LIPITOR [Concomitant]
  11. POTASSIUM CHLORIDE [Concomitant]
     Dosage: TOTAL DAILY DOSE: 40 MG
  12. ASPIRIN [Concomitant]
  13. MECLIZINE [Concomitant]
     Dosage: TOTAL DAILY DOSE: 1 DF
  14. LIDODERM [Concomitant]
  15. OXYCODONE HCL [Concomitant]
  16. MULTIVITAMIN B COMPLEX, VIT E, VIT C [Concomitant]
  17. CALCIUM [Concomitant]

REACTIONS (1)
  - LIVER OPERATION [None]
